FAERS Safety Report 7748789-8 (Version None)
Quarter: 2011Q3

REPORT INFORMATION
  Report Type: 
  Country: None (occurrence: None)
  Receive Date: 20110914
  Receipt Date: 20110830
  Transmission Date: 20111222
  Serious: Yes (Other)
  Sender: FDA-Public Use
  Company Number: JP-CELGENEUS-087-21660-11090146

PATIENT

DRUGS (1)
  1. ABRAXANE [Suspect]
     Dosage: 80-150 MG/M^2
     Route: 041

REACTIONS (19)
  - DIARRHOEA [None]
  - FATIGUE [None]
  - MYALGIA [None]
  - DYSPHAGIA [None]
  - PERIPHERAL SENSORY NEUROPATHY [None]
  - NAUSEA [None]
  - RASH [None]
  - NEUTROPENIA [None]
  - ONYCHOMADESIS [None]
  - FEBRILE NEUTROPENIA [None]
  - ANAEMIA [None]
  - MACULAR HOLE [None]
  - NAIL DISORDER [None]
  - TRANSAMINASES INCREASED [None]
  - HYPERSENSITIVITY [None]
  - KERATOPATHY [None]
  - STOMATITIS [None]
  - THROMBOCYTOPENIA [None]
  - OEDEMA [None]
